FAERS Safety Report 26155061 (Version 1)
Quarter: 2025Q4

REPORT INFORMATION
  Report Type: Spontaneous
  Country: US (occurrence: US)
  Receive Date: 20251215
  Receipt Date: 20251215
  Transmission Date: 20260117
  Serious: Yes (Other)
  Sender: ABBVIE
  Company Number: US-ABBVIE-6585927

PATIENT
  Age: 90 Year
  Sex: Female

DRUGS (1)
  1. RESTASIS [Suspect]
     Active Substance: CYCLOSPORINE
     Indication: Product used for unknown indication
     Dosage: PATIENT ROA: OPHTHALMIC
     Route: 065

REACTIONS (6)
  - Macular degeneration [Unknown]
  - Unevaluable event [Not Recovered/Not Resolved]
  - Product quality issue [Unknown]
  - Eye irritation [Unknown]
  - Spinal stenosis [Unknown]
  - Eye pain [Unknown]
